FAERS Safety Report 7755564 (Version 4)
Quarter: 2014Q1

REPORT INFORMATION
  Report Type: Spontaneous
  Country: US (occurrence: US)
  Receive Date: 20110111
  Receipt Date: 20140122
  Transmission Date: 20141002
  Serious: Yes (Other)
  Sender: FDA-Public Use
  Company Number: US-ROCHE-731175

PATIENT
  Age: 18 Year
  Sex: Male
  Weight: 88.5 kg

DRUGS (1)
  1. ACCUTANE [Suspect]
     Indication: ACNE
     Dosage: DOSE: 80 MG AND 40 MG ON ALTERNATE DAYS, 30 MG AND 40 MG ON ALTERNATE DAYS
     Route: 065
     Dates: start: 1988, end: 199112

REACTIONS (17)
  - Crohn^s disease [Unknown]
  - Gastrointestinal injury [Unknown]
  - Inflammatory bowel disease [Unknown]
  - Intestinal obstruction [Unknown]
  - Cyst [Unknown]
  - Chronic sinusitis [Unknown]
  - Medial tibial stress syndrome [Unknown]
  - Skin papilloma [Unknown]
  - Cyst [Unknown]
  - Headache [Unknown]
  - Pharyngitis [Unknown]
  - Abscess limb [Unknown]
  - Muscle strain [Unknown]
  - Contusion [Unknown]
  - Muscle strain [Unknown]
  - Muscle strain [Unknown]
  - Back pain [Unknown]
